FAERS Safety Report 25225555 (Version 1)
Quarter: 2025Q2

REPORT INFORMATION
  Report Type: Spontaneous
  Country: PL (occurrence: PL)
  Receive Date: 20250422
  Receipt Date: 20250422
  Transmission Date: 20250717
  Serious: Yes (Other)
  Sender: BAYER HEALTHCARE PHARMACEUTICALS INC.
  Company Number: PL-BAYER-2025A054758

PATIENT
  Age: 29 Year
  Sex: Female
  Weight: 49 kg

DRUGS (1)
  1. YAZ [Suspect]
     Active Substance: DROSPIRENONE\ETHINYL ESTRADIOL
     Indication: Endometriosis
     Dosage: 1 DF, QD
     Route: 048
     Dates: start: 20250311, end: 20250312

REACTIONS (4)
  - Angina pectoris [None]
  - Tachycardia [None]
  - Chest pain [None]
  - Product use in unapproved indication [None]

NARRATIVE: CASE EVENT DATE: 20250311
